FAERS Safety Report 9013832 (Version 1)
Quarter: 2013Q1

REPORT INFORMATION
  Report Type: Spontaneous
  Country: US (occurrence: None)
  Receive Date: 20130108
  Receipt Date: 20130108
  Transmission Date: 20140127
  Serious: Yes (Hospitalization)
  Sender: FDA-Public Use
  Company Number: None

PATIENT
  Age: 29 Year
  Sex: Female
  Weight: 45.36 kg

DRUGS (1)
  1. MIRENA, MIRENA INTRA UTERINE DEVICE [Suspect]
     Dates: start: 20100901, end: 20120101

REACTIONS (2)
  - Pelvic inflammatory disease [None]
  - Fungal infection [None]
